FAERS Safety Report 10034513 (Version 1)
Quarter: 2014Q1

REPORT INFORMATION
  Report Type: Spontaneous
  Country: US (occurrence: US)
  Receive Date: 20140325
  Receipt Date: 20140325
  Transmission Date: 20141002
  Serious: Yes (Other)
  Sender: FDA-Public Use
  Company Number: US-PERRIGO-14US002830

PATIENT
  Sex: Female
  Weight: 84.81 kg

DRUGS (8)
  1. POLYETHYLENE GLYCOL 3350 17G 306 [Suspect]
     Indication: CONSTIPATION
     Dosage: 17 G, QD TO QOD
     Route: 048
     Dates: start: 2013, end: 2013
  2. MIRALAX /00754501/ [Suspect]
     Indication: CONSTIPATION
     Dosage: 17 G, QD TO QOD
     Route: 048
     Dates: start: 2013, end: 2013
  3. METFORMIN [Concomitant]
     Indication: DIABETES MELLITUS
     Dosage: UNK
     Route: 048
     Dates: start: 2009
  4. METOPROLOL [Concomitant]
     Indication: ANXIETY
     Dosage: UNK
     Route: 048
     Dates: start: 2001
  5. LEVOXYL [Concomitant]
     Indication: HYPOTHYROIDISM
     Dosage: UNK
     Route: 048
     Dates: start: 1990
  6. LEXAPRO [Concomitant]
     Indication: DEPRESSION
     Dosage: UNK
     Route: 048
     Dates: start: 2007
  7. ATIVAN [Concomitant]
     Indication: ANXIETY
     Dosage: UNK
     Route: 048
     Dates: start: 2011
  8. LAMICTAL [Concomitant]
     Indication: AFFECTIVE DISORDER
     Dosage: UNK
     Route: 048
     Dates: start: 2009

REACTIONS (2)
  - Renal failure [Not Recovered/Not Resolved]
  - Incorrect drug administration duration [Recovered/Resolved]
